FAERS Safety Report 16664657 (Version 1)
Quarter: 2019Q3

REPORT INFORMATION
  Report Type: Spontaneous
  Country: US (occurrence: US)
  Receive Date: 20190803
  Receipt Date: 20190803
  Transmission Date: 20191004
  Serious: Yes (Hospitalization)
  Sender: FDA-Public Use
  Company Number: US-ROCHE-2370330

PATIENT
  Sex: Male

DRUGS (3)
  1. ESBRIET [Suspect]
     Active Substance: PIRFENIDONE
     Dosage: 3 TABS TID;
     Route: 048
  2. ESBRIET [Suspect]
     Active Substance: PIRFENIDONE
     Indication: IDIOPATHIC PULMONARY FIBROSIS
     Dosage: 1 TAB TID; FOR 1 WEEK
     Route: 048
  3. ESBRIET [Suspect]
     Active Substance: PIRFENIDONE
     Dosage: 2 TABS TID; FOR 1 WEEK
     Route: 048

REACTIONS (1)
  - Haematochezia [Unknown]
